FAERS Safety Report 5887716-5 (Version None)
Quarter: 2008Q3

REPORT INFORMATION
  Report Type: 
  Country: None (occurrence: None)
  Receive Date: 20080916
  Receipt Date: 20080908
  Transmission Date: 20090109
  Serious: Yes (Life-Threatening, Other)
  Sender: FDA-Public Use
  Company Number: 033379

PATIENT
  Age: 5 Year
  Sex: Male

DRUGS (1)
  1. ADDERALL 10 [Suspect]
     Indication: ATTENTION DEFICIT/HYPERACTIVITY DISORDER
     Dosage: ORAL
     Route: 048

REACTIONS (3)
  - ASPHYXIA [None]
  - PHYSICAL ASSAULT [None]
  - SUICIDE ATTEMPT [None]
